FAERS Safety Report 9789707 (Version 1)
Quarter: 2013Q4

REPORT INFORMATION
  Report Type: Spontaneous
  Country: JP (occurrence: None)
  Receive Date: 20131227
  Receipt Date: 20131227
  Transmission Date: 20140711
  Serious: Yes (Other)
  Sender: FDA-Public Use
  Company Number: 2013P1022175

PATIENT
  Age: 45 Year
  Sex: Female

DRUGS (3)
  1. PHENOBARBITAL [Suspect]
     Indication: CLONIC CONVULSION
  2. PREDNISOLONE [Concomitant]
  3. LOW DOSE CONTRACEPTIVE [Concomitant]

REACTIONS (9)
  - Amyloidosis [None]
  - Porphyria acute [None]
  - Haemodialysis [None]
  - Renal disorder [None]
  - Cardiac failure congestive [None]
  - Thrombocytopenia [None]
  - Anaemia [None]
  - Gastrointestinal haemorrhage [None]
  - Hypertension [None]
